FAERS Safety Report 11641520 (Version 1)
Quarter: 2015Q4

REPORT INFORMATION
  Report Type: Report from Study
  Country: US (occurrence: US)
  Receive Date: 20151019
  Receipt Date: 20151019
  Transmission Date: 20160304
  Serious: No
  Sender: FDA-Public Use
  Company Number: US-AMGEN-USASL2015106949

PATIENT
  Age: 54 Year
  Sex: Female

DRUGS (1)
  1. ENBREL [Suspect]
     Active Substance: ETANERCEPT
     Indication: RHEUMATOID ARTHRITIS
     Dosage: UNK UNK, QWK
     Route: 065
     Dates: start: 20151009

REACTIONS (5)
  - Hyperhidrosis [Unknown]
  - Blood glucose decreased [Unknown]
  - Injection site discolouration [Recovering/Resolving]
  - Injection site pain [Unknown]
  - Fungal infection [Unknown]

NARRATIVE: CASE EVENT DATE: 201510
